FAERS Safety Report 10050563 (Version 1)
Quarter: 2014Q2

REPORT INFORMATION
  Report Type: Spontaneous
  Country: US (occurrence: US)
  Receive Date: 20140401
  Receipt Date: 20140401
  Transmission Date: 20141212
  Serious: No
  Sender: FDA-Public Use
  Company Number: US-ASTRAZENECA-2013SE87508

PATIENT
  Age: 89 Year
  Sex: Female
  Weight: 51.3 kg

DRUGS (6)
  1. NEXIUM [Suspect]
     Route: 048
     Dates: end: 2009
  2. NEXIUM [Suspect]
     Route: 048
     Dates: start: 201308, end: 20131124
  3. PRILOSEC [Suspect]
     Route: 048
     Dates: start: 2009, end: 2013
  4. PRILOSEC [Suspect]
     Route: 048
     Dates: start: 20131124
  5. AMLODIPINE [Concomitant]
     Indication: BLOOD PRESSURE
     Route: 048
     Dates: start: 2011
  6. INJECTIONS [Concomitant]
     Indication: SEASONAL ALLERGY
     Dosage: UNKNOWN Q6WEEKS

REACTIONS (4)
  - Anaemia [Unknown]
  - Gastrooesophageal reflux disease [Unknown]
  - Diarrhoea [Unknown]
  - Drug effect incomplete [Unknown]
